FAERS Safety Report 13850995 (Version 4)
Quarter: 2018Q1

REPORT INFORMATION
  Report Type: Spontaneous
  Country: US (occurrence: US)
  Receive Date: 20170809
  Receipt Date: 20180315
  Transmission Date: 20180508
  Serious: Yes (Other)
  Sender: FDA-Public Use
  Company Number: US-009507513-1708USA001396

PATIENT
  Age: 62 Year
  Sex: Male

DRUGS (6)
  1. LEDIPASVIR (+) SOFOSBUVIR [Suspect]
     Active Substance: LEDIPASVIR\SOFOSBUVIR
     Indication: CHRONIC HEPATITIS C
     Dosage: UNK
  2. LEDIPASVIR (+) SOFOSBUVIR [Suspect]
     Active Substance: LEDIPASVIR\SOFOSBUVIR
     Indication: ANTIVIRAL TREATMENT
  3. REBETOL [Suspect]
     Active Substance: RIBAVIRIN
     Indication: CHRONIC HEPATITIS C
     Dosage: UNK
     Route: 048
  4. REBETOL [Suspect]
     Active Substance: RIBAVIRIN
     Indication: ANTIVIRAL TREATMENT
  5. PREDNISONE. [Concomitant]
     Active Substance: PREDNISONE
     Indication: IMMUNOSUPPRESSANT DRUG THERAPY
     Dosage: UNK
  6. TACROLIMUS. [Concomitant]
     Active Substance: TACROLIMUS
     Indication: IMMUNOSUPPRESSANT DRUG THERAPY
     Dosage: UNK

REACTIONS (2)
  - End stage renal disease [Unknown]
  - Focal segmental glomerulosclerosis [Unknown]
